FAERS Safety Report 5064126-4 (Version None)
Quarter: 2006Q3

REPORT INFORMATION
  Report Type: 
  Country: None (occurrence: None)
  Receive Date: 20060728
  Receipt Date: 20060622
  Transmission Date: 20061208
  Serious: Yes (Other)
  Sender: FDA-Public Use
  Company Number: PHEH2006US08231

PATIENT
  Age: 71 Year
  Sex: Female

DRUGS (4)
  1. ZOMETA [Suspect]
     Indication: MULTIPLE MYELOMA
     Dosage: 4 MG MONTHLY
     Dates: start: 20020101, end: 20060531
  2. THALIDOMIDE [Concomitant]
     Indication: MULTIPLE MYELOMA
     Dates: start: 20031208
  3. VELCADE [Concomitant]
     Indication: MULTIPLE MYELOMA
     Dates: start: 20040201
  4. AREDIA [Suspect]
     Indication: MULTIPLE MYELOMA
     Dates: start: 20010622

REACTIONS (1)
  - OSTEONECROSIS [None]
